FAERS Safety Report 16138939 (Version 1)
Quarter: 2019Q2

REPORT INFORMATION
  Report Type: Spontaneous
  Country: US (occurrence: US)
  Receive Date: 20190401
  Receipt Date: 20190401
  Transmission Date: 20190711
  Serious: Yes (Hospitalization, Other)
  Sender: FDA-Public Use
  Company Number: US-TEVA-2019-US-1031240

PATIENT
  Age: 39 Year
  Sex: Male
  Weight: 115 kg

DRUGS (2)
  1. COPAXONE [Suspect]
     Active Substance: GLATIRAMER ACETATE
     Indication: MULTIPLE SCLEROSIS
     Dosage: 20 MILLIGRAM/MILLILITERS DAILY;
     Route: 065
     Dates: start: 2012
  2. NEURONTIN [Concomitant]
     Active Substance: GABAPENTIN

REACTIONS (5)
  - Multiple sclerosis relapse [Unknown]
  - Drug ineffective [Unknown]
  - Blindness [Unknown]
  - Corneal scar [Unknown]
  - Optic neuritis [Unknown]

NARRATIVE: CASE EVENT DATE: 20190201
